FAERS Safety Report 7693535-X (Version None)
Quarter: 2011Q3

REPORT INFORMATION
  Report Type: 
  Country: None (occurrence: None)
  Receive Date: 20110819
  Receipt Date: 20110808
  Transmission Date: 20111222
  Serious: No
  Sender: FDA-Public Use
  Company Number: US-B.I. PHARMACEUTICALS,INC./RIDGEFIELD-2011-BP-19444BP

PATIENT
  Sex: Female

DRUGS (2)
  1. COMBIVENT [Suspect]
     Indication: CHRONIC OBSTRUCTIVE PULMONARY DISEASE
     Route: 055
     Dates: start: 20020101, end: 20110701
  2. ESTRACE [Concomitant]
     Indication: HYSTERECTOMY
     Dosage: 2 MG
     Route: 048

REACTIONS (4)
  - ALOPECIA [None]
  - HOT FLUSH [None]
  - ONYCHOMADESIS [None]
  - WEIGHT INCREASED [None]
